FAERS Safety Report 7400999-5 (Version None)
Quarter: 2011Q2

REPORT INFORMATION
  Report Type: 
  Country: None (occurrence: None)
  Receive Date: 20110407
  Receipt Date: 20110401
  Transmission Date: 20111010
  Serious: Yes (Life-Threatening, Other)
  Sender: FDA-Public Use
  Company Number: PHHY2011US28045

PATIENT
  Sex: Female

DRUGS (2)
  1. RECLAST [Suspect]
     Dosage: 5 MG
     Route: 042
     Dates: start: 20100101
  2. MORPHINE [Concomitant]

REACTIONS (5)
  - BEDRIDDEN [None]
  - ARTHRALGIA [None]
  - PAIN [None]
  - FEELING ABNORMAL [None]
  - RENAL PAIN [None]
